FAERS Safety Report 14796388 (Version 2)
Quarter: 2018Q3

REPORT INFORMATION
  Report Type: Report from Study
  Country: US (occurrence: US)
  Receive Date: 20180423
  Receipt Date: 20180719
  Transmission Date: 20181010
  Serious: No
  Sender: FDA-Public Use
  Company Number: US-AMGEN-USASL2018004549

PATIENT
  Age: 82 Year
  Sex: Female
  Weight: 94.33 kg

DRUGS (2)
  1. REPATHA [Suspect]
     Active Substance: EVOLOCUMAB
     Indication: BLOOD CHOLESTEROL INCREASED
     Dosage: 140 MG, Q2WK
     Route: 058
     Dates: start: 20171228
  2. REPATHA [Suspect]
     Active Substance: EVOLOCUMAB
     Dosage: 75 MG, Q2WK
     Route: 065

REACTIONS (8)
  - Dizziness [Not Recovered/Not Resolved]
  - Tremor [Unknown]
  - Off label use [Unknown]
  - Ear pain [Not Recovered/Not Resolved]
  - Drug effect incomplete [Unknown]
  - Chest pain [Not Recovered/Not Resolved]
  - Sinusitis [Not Recovered/Not Resolved]
  - Productive cough [Unknown]

NARRATIVE: CASE EVENT DATE: 20171228
